FAERS Safety Report 9125758 (Version 1)
Quarter: 2013Q1

REPORT INFORMATION
  Report Type: Spontaneous
  Country: US (occurrence: US)
  Receive Date: 20130227
  Receipt Date: 20130227
  Transmission Date: 20140127
  Serious: No
  Sender: FDA-Public Use
  Company Number: US-PFIZER INC-2013066816

PATIENT
  Age: 74 Year
  Sex: Female

DRUGS (2)
  1. AZITHROMYCIN [Suspect]
     Dosage: 500 MG, UNK
  2. NITROFURANTOIN [Suspect]
     Dosage: 100 MG, UNK

REACTIONS (1)
  - Hypersensitivity [Unknown]
